FAERS Safety Report 6635193-9 (Version None)
Quarter: 2010Q1

REPORT INFORMATION
  Report Type: 
  Country: None (occurrence: None)
  Receive Date: 20100315
  Receipt Date: 20100312
  Transmission Date: 20100710
  Serious: Yes (Death, Hospitalization, Other)
  Sender: FDA-Public Use
  Company Number: PHHY2009GB39236

PATIENT
  Age: 66 Year
  Sex: Female

DRUGS (3)
  1. CLOZAPINE [Suspect]
     Dosage: UNK
     Dates: start: 20090601, end: 20090803
  2. ZAPONEX [Suspect]
     Indication: CONFUSIONAL STATE
     Dosage: 200 MG, UNK
     Route: 048
     Dates: start: 20090803, end: 20090821
  3. ZAPONEX [Suspect]
     Dosage: 200 MG, UNK
     Route: 048
     Dates: start: 20090801

REACTIONS (4)
  - CARDIAC FAILURE CONGESTIVE [None]
  - CONFUSIONAL STATE [None]
  - LOWER RESPIRATORY TRACT INFECTION [None]
  - PNEUMONIA [None]
